FAERS Safety Report 22166047 (Version 1)
Quarter: 2023Q1

REPORT INFORMATION
  Report Type: Spontaneous
  Country: US (occurrence: None)
  Receive Date: 20230331
  Receipt Date: 20230331
  Transmission Date: 20230418
  Serious: Yes (Disabling)
  Sender: FDA-Public Use
  Company Number: None

PATIENT
  Age: 52 Year
  Sex: Female

DRUGS (3)
  1. DULOXETINE [Suspect]
     Active Substance: DULOXETINE
     Indication: Depression
     Dosage: OTHER QUANTITY : 1 CAPSULE(S);?
     Route: 048
     Dates: start: 20220711, end: 20230331
  2. DULOXETINE [Suspect]
     Active Substance: DULOXETINE
     Indication: Neuralgia
  3. TRAMADOL [Concomitant]
     Active Substance: TRAMADOL

REACTIONS (4)
  - Trismus [None]
  - Tongue thrust [None]
  - Tooth extraction [None]
  - Skeletal injury [None]

NARRATIVE: CASE EVENT DATE: 20221010
